FAERS Safety Report 16938742 (Version 1)
Quarter: 2019Q4

REPORT INFORMATION
  Report Type: Spontaneous
  Country: US (occurrence: US)
  Receive Date: 20190828
  Receipt Date: 20190828
  Transmission Date: 20200122
  Serious: Yes (Hospitalization)
  Sender: FDA-Public Use
  Company Number: None

PATIENT
  Age: 73 Year
  Sex: Male
  Weight: 78.47 kg

DRUGS (1)
  1. YESCARTA [Suspect]
     Active Substance: AXICABTAGENE CILOLEUCEL
     Route: 042
     Dates: start: 20190719

REACTIONS (3)
  - Dysphagia [None]
  - Somnolence [None]
  - Neurotoxicity [None]

NARRATIVE: CASE EVENT DATE: 20190719
